FAERS Safety Report 5738796-9 (Version None)
Quarter: 2008Q2

REPORT INFORMATION
  Report Type: 
  Country: None (occurrence: None)
  Receive Date: 20080515
  Receipt Date: 20080313
  Transmission Date: 20081010
  Serious: No
  Sender: FDA-Public Use
  Company Number: A0713538A

PATIENT
  Age: 7 Year
  Sex: Female
  Weight: 24.5 kg

DRUGS (3)
  1. VERAMYST [Suspect]
     Dosage: 2SPR PER DAY
     Route: 045
     Dates: start: 20071016, end: 20071018
  2. ALLEGRA [Concomitant]
  3. SINGULAIR [Concomitant]

REACTIONS (3)
  - FLUSHING [None]
  - SWELLING [None]
  - URTICARIA [None]
